FAERS Safety Report 9287623 (Version 1)
Quarter: 2013Q2

REPORT INFORMATION
  Report Type: Report from Study
  Country: CN (occurrence: CN)
  Receive Date: 20130514
  Receipt Date: 20130514
  Transmission Date: 20140414
  Serious: Yes (Other)
  Sender: FDA-Public Use
  Company Number: CN-ROCHE-1224240

PATIENT
  Sex: Male
  Weight: 55 kg

DRUGS (1)
  1. PEGASYS [Suspect]
     Indication: HEPATITIS C
     Route: 058
     Dates: start: 201205

REACTIONS (3)
  - Platelet count decreased [Recovering/Resolving]
  - Cachexia [Unknown]
  - Alopecia [Unknown]
